FAERS Safety Report 16831309 (Version 1)
Quarter: 2019Q3

REPORT INFORMATION
  Report Type: Spontaneous
  Country: GB (occurrence: GB)
  Receive Date: 20190920
  Receipt Date: 20190920
  Transmission Date: 20191005
  Serious: Yes (Other)
  Sender: FDA-Public Use
  Company Number: GB-TEVA-2019-GB-1109812

PATIENT
  Age: 4 Week
  Sex: Female
  Weight: 4.08 kg

DRUGS (1)
  1. NYSTATIN. [Suspect]
     Active Substance: NYSTATIN
     Indication: ORAL CANDIDIASIS
     Dosage: AFTER FEEDING.
     Route: 048

REACTIONS (1)
  - Vomiting projectile [Recovered/Resolved]
